FAERS Safety Report 15117386 (Version 1)
Quarter: 2018Q3

REPORT INFORMATION
  Report Type: Spontaneous
  Country: ES (occurrence: ES)
  Receive Date: 20180706
  Receipt Date: 20180706
  Transmission Date: 20181010
  Serious: Yes (Other)
  Sender: FDA-Public Use
  Company Number: ES-ALLERGAN-1833832US

PATIENT
  Age: 57 Year
  Sex: Male
  Weight: 148 kg

DRUGS (1)
  1. SILODOSIN ? BP [Suspect]
     Active Substance: SILODOSIN
     Indication: PRODUCT USED FOR UNKNOWN INDICATION
     Dosage: 1 DF, QD
     Route: 048
     Dates: start: 20171115, end: 20171116

REACTIONS (3)
  - Hypotension [Recovered/Resolved]
  - Pruritus generalised [Recovered/Resolved]
  - Tachycardia [Recovered/Resolved]

NARRATIVE: CASE EVENT DATE: 20171115
